FAERS Safety Report 25203320 (Version 3)
Quarter: 2025Q2

REPORT INFORMATION
  Report Type: Spontaneous
  Country: SE (occurrence: SE)
  Receive Date: 20250416
  Receipt Date: 20250514
  Transmission Date: 20250716
  Serious: Yes (Hospitalization, Other)
  Sender: MYLAN
  Company Number: SE-TAKEDA-2025TUS024933

PATIENT
  Age: 48 Year
  Sex: Female
  Weight: 59 kg

DRUGS (32)
  1. CYKLOKAPRON [Suspect]
     Active Substance: TRANEXAMIC ACID
     Indication: Haemostasis
  2. CYKLOKAPRON [Suspect]
     Active Substance: TRANEXAMIC ACID
     Route: 048
  3. CYKLOKAPRON [Suspect]
     Active Substance: TRANEXAMIC ACID
     Route: 048
  4. CYKLOKAPRON [Suspect]
     Active Substance: TRANEXAMIC ACID
  5. CYKLOKAPRON [Suspect]
     Active Substance: TRANEXAMIC ACID
     Indication: Haemostasis
  6. CYKLOKAPRON [Suspect]
     Active Substance: TRANEXAMIC ACID
     Route: 042
  7. CYKLOKAPRON [Suspect]
     Active Substance: TRANEXAMIC ACID
     Route: 042
  8. CYKLOKAPRON [Suspect]
     Active Substance: TRANEXAMIC ACID
  9. VONICOG ALFA [Suspect]
     Active Substance: VONICOG ALFA
     Indication: Von Willebrand^s disease
     Dates: start: 20250227, end: 20250303
  10. VONICOG ALFA [Suspect]
     Active Substance: VONICOG ALFA
     Indication: Haemostasis
     Dates: start: 20250227, end: 20250303
  11. VONICOG ALFA [Suspect]
     Active Substance: VONICOG ALFA
     Route: 042
     Dates: start: 20250227, end: 20250303
  12. VONICOG ALFA [Suspect]
     Active Substance: VONICOG ALFA
     Route: 042
     Dates: start: 20250227, end: 20250303
  13. VONICOG ALFA [Suspect]
     Active Substance: VONICOG ALFA
     Route: 042
  14. VONICOG ALFA [Suspect]
     Active Substance: VONICOG ALFA
     Route: 042
  15. VONICOG ALFA [Suspect]
     Active Substance: VONICOG ALFA
  16. VONICOG ALFA [Suspect]
     Active Substance: VONICOG ALFA
  17. VONICOG ALFA [Suspect]
     Active Substance: VONICOG ALFA
     Route: 042
  18. VONICOG ALFA [Suspect]
     Active Substance: VONICOG ALFA
     Route: 042
  19. VONICOG ALFA [Suspect]
     Active Substance: VONICOG ALFA
  20. VONICOG ALFA [Suspect]
     Active Substance: VONICOG ALFA
  21. VONICOG ALFA [Suspect]
     Active Substance: VONICOG ALFA
     Route: 042
  22. VONICOG ALFA [Suspect]
     Active Substance: VONICOG ALFA
     Route: 042
  23. VONICOG ALFA [Suspect]
     Active Substance: VONICOG ALFA
  24. VONICOG ALFA [Suspect]
     Active Substance: VONICOG ALFA
  25. VONICOG ALFA [Suspect]
     Active Substance: VONICOG ALFA
     Route: 042
     Dates: start: 20250303, end: 20250303
  26. VONICOG ALFA [Suspect]
     Active Substance: VONICOG ALFA
     Route: 042
     Dates: start: 20250303, end: 20250303
  27. VONICOG ALFA [Suspect]
     Active Substance: VONICOG ALFA
     Dates: start: 20250303, end: 20250303
  28. VONICOG ALFA [Suspect]
     Active Substance: VONICOG ALFA
     Dates: start: 20250303, end: 20250303
  29. VONICOG ALFA [Suspect]
     Active Substance: VONICOG ALFA
  30. VONICOG ALFA [Suspect]
     Active Substance: VONICOG ALFA
  31. VONICOG ALFA [Suspect]
     Active Substance: VONICOG ALFA
     Route: 042
  32. VONICOG ALFA [Suspect]
     Active Substance: VONICOG ALFA
     Route: 042

REACTIONS (3)
  - Pulmonary embolism [Recovering/Resolving]
  - Procedural pain [Recovering/Resolving]
  - Bedridden [Unknown]

NARRATIVE: CASE EVENT DATE: 20250305
